FAERS Safety Report 8392066-1 (Version None)
Quarter: 2012Q1

REPORT INFORMATION
  Report Type: 
  Country: None (occurrence: None)
  Receive Date: 20120323
  Receipt Date: 20110301
  Transmission Date: 20120608
  Serious: Yes (Hospitalization)
  Sender: FDA-Public Use
  Company Number: 163-21880-11030093

PATIENT
  Age: 60 Year
  Sex: Female
  Weight: 60.782 kg

DRUGS (5)
  1. DEXAMETHASONE [Concomitant]
  2. DARVOCET (PROPACET) (UNKNOWN) [Concomitant]
  3. REVLIMID [Suspect]
     Indication: MULTIPLE MYELOMA
     Dosage: 25 MG, 1 IN 1 D, PO
     Route: 048
     Dates: start: 20101201, end: 20101220
  4. COMPAZINE (PROCHLORPRAZINE EDISYLATE)(UNKNOWN) [Concomitant]
  5. VELCADE [Concomitant]

REACTIONS (7)
  - VOMITING [None]
  - RENAL FAILURE [None]
  - DIARRHOEA [None]
  - WEIGHT DECREASED [None]
  - NAUSEA [None]
  - RASH GENERALISED [None]
  - ANAEMIA [None]
